FAERS Safety Report 8227818-1 (Version None)
Quarter: 2012Q1

REPORT INFORMATION
  Report Type: 
  Country: None (occurrence: None)
  Receive Date: 20120322
  Receipt Date: 20120313
  Transmission Date: 20120608
  Serious: Yes (Hospitalization)
  Sender: FDA-Public Use
  Company Number: US-ROCHE-1049861

PATIENT
  Sex: Male

DRUGS (3)
  1. INCIVEK [Concomitant]
  2. RIBASPHERE [Concomitant]
  3. PEGASYS [Suspect]
     Indication: PRODUCT USED FOR UNKNOWN INDICATION

REACTIONS (9)
  - HEADACHE [None]
  - RASH [None]
  - HYPOPARATHYROIDISM [None]
  - HAEMOGLOBIN DECREASED [None]
  - BLOOD CALCIUM DECREASED [None]
  - BLOOD POTASSIUM DECREASED [None]
  - MOOD SWINGS [None]
  - PHOTOSENSITIVITY REACTION [None]
  - PRURITUS [None]
